APPROVED DRUG PRODUCT: TIOPRONIN
Active Ingredient: TIOPRONIN
Strength: 300MG
Dosage Form/Route: TABLET, DELAYED RELEASE;ORAL
Application: A216456 | Product #002 | TE Code: AB
Applicant: TEVA PHARMACEUTICALS INC
Approved: Jul 22, 2024 | RLD: No | RS: No | Type: RX